FAERS Safety Report 4310852-1 (Version None)
Quarter: 2004Q1

REPORT INFORMATION
  Report Type: 
  Country: None (occurrence: None)
  Receive Date: 20040304
  Receipt Date: 20031103
  Transmission Date: 20041129
  Serious: Yes (Other)
  Sender: FDA-Public Use
  Company Number: PHEH2003US10125

PATIENT
  Age: 48 Year
  Sex: Female

DRUGS (15)
  1. TRILEPTAL [Suspect]
     Dosage: UNK/UNK
     Dates: start: 20030827
  2. DEPAKOTE [Concomitant]
     Dosage: 1750MG DAILY
  3. DEPAKOTE [Concomitant]
     Dosage: 500MG QAM/ 1000MG QPM
  4. KLONOPIN [Concomitant]
     Dosage: 3MG/QPM
  5. PROMETHAZINE HCL [Concomitant]
  6. KEPPRA [Concomitant]
     Dosage: 500 MG, UNK
  7. LEVBID [Concomitant]
  8. LEVSIN PB [Concomitant]
  9. HYDROCHLOROTHIAZIDE [Concomitant]
     Dosage: 25 MG, QD
  10. MICRO-K [Concomitant]
  11. ALBUTEROL [Concomitant]
  12. LUMIGAN [Concomitant]
     Dosage: 1 GTT, QHS
  13. PREMARIN [Concomitant]
     Dates: end: 20031113
  14. TESSALON [Concomitant]
     Dates: end: 20031113
  15. BACTRIM [Concomitant]
     Dosage: 500 MG, QD
     Dates: end: 20031113

REACTIONS (9)
  - ABDOMINAL PAIN [None]
  - DIARRHOEA [None]
  - HYPERHIDROSIS [None]
  - NAUSEA [None]
  - PYREXIA [None]
  - SKIN BURNING SENSATION [None]
  - VOMITING [None]
  - WEIGHT DECREASED [None]
  - WEIGHT INCREASED [None]
